FAERS Safety Report 6521421-7 (Version None)
Quarter: 2009Q4

REPORT INFORMATION
  Report Type: 
  Country: None (occurrence: None)
  Receive Date: 20091230
  Receipt Date: 20091223
  Transmission Date: 20100525
  Serious: Yes (Hospitalization, Other)
  Sender: FDA-Public Use
  Company Number: FR-ASTRAZENECA-2009SE04967

PATIENT
  Age: 24252 Day
  Sex: Male
  Weight: 80 kg

DRUGS (4)
  1. CRESTOR [Suspect]
     Indication: DYSLIPIDAEMIA
     Route: 048
     Dates: start: 20090217, end: 20090429
  2. PLAVIX [Suspect]
     Indication: CORONARY ARTERY DISEASE
     Route: 048
     Dates: start: 20070101
  3. NISISCO [Suspect]
     Indication: HYPERTENSION
     Route: 065
     Dates: start: 20050101
  4. EUPANTHOL [Concomitant]
     Indication: GASTRITIS
     Route: 048

REACTIONS (1)
  - ERYTHEMA MULTIFORME [None]
